FAERS Safety Report 14599648 (Version 1)
Quarter: 2018Q1

REPORT INFORMATION
  Report Type: Spontaneous
  Country: NL (occurrence: NL)
  Receive Date: 20180305
  Receipt Date: 20180305
  Transmission Date: 20180509
  Serious: Yes (Other)
  Sender: FDA-Public Use
  Company Number: NL-GLAXOSMITHKLINE-NL2017GSK125184

PATIENT
  Age: 66 Year
  Sex: Male

DRUGS (5)
  1. BENSERAZIDE + LEVODOPA [Concomitant]
     Active Substance: BENSERAZIDE\LEVODOPA
     Dosage: AS DISPERSIBLE TABLETS; LATER 100MG ANTE NOCTUM TID WAS FURTHER ADDED
     Route: 065
  2. AMANTADINE. [Suspect]
     Active Substance: AMANTADINE HYDROCHLORIDE
     Indication: ANXIETY
     Dosage: 100 MG, TID
     Route: 065
  3. AMANTADINE. [Suspect]
     Active Substance: AMANTADINE HYDROCHLORIDE
     Indication: DYSKINESIA
  4. ROPINIROLE. [Suspect]
     Active Substance: ROPINIROLE
     Indication: PARKINSON^S DISEASE
     Dosage: UNK
     Route: 065
  5. BENSERAZIDE + LEVODOPA [Concomitant]
     Active Substance: BENSERAZIDE\LEVODOPA
     Indication: PARKINSON^S DISEASE
     Dosage: ANTE NOCTUM
     Route: 065

REACTIONS (4)
  - Myoclonus [Recovered/Resolved]
  - Overdose [Unknown]
  - Dyskinesia [Unknown]
  - Speech disorder [Unknown]
